FAERS Safety Report 8052881-0 (Version None)
Quarter: 2012Q1

REPORT INFORMATION
  Report Type: 
  Country: None (occurrence: None)
  Receive Date: 20120118
  Receipt Date: 20120116
  Transmission Date: 20120608
  Serious: Yes (Hospitalization)
  Sender: FDA-Public Use
  Company Number: PH-EISAI INC-E2090-01941-SPO-PH

PATIENT
  Age: 28 Year
  Sex: Female

DRUGS (1)
  1. ZONEGRAN [Suspect]
     Route: 048
     Dates: start: 20111219, end: 20120110

REACTIONS (1)
  - RASH [None]
